FAERS Safety Report 9290782 (Version 1)
Quarter: 2013Q2

REPORT INFORMATION
  Report Type: Spontaneous
  Country: CA (occurrence: CA)
  Receive Date: 20130515
  Receipt Date: 20130515
  Transmission Date: 20140414
  Serious: Yes (Death, Hospitalization)
  Sender: FDA-Public Use
  Company Number: CA-B.I. PHARMACEUTICALS,INC./RIDGEFIELD-2013-CN-00903CN

PATIENT
  Age: 75 Year
  Sex: Female

DRUGS (2)
  1. PRADAXA [Suspect]
     Indication: ATRIAL FIBRILLATION
     Dosage: 220 MG
  2. PROTHROMBIN COMPLEX CONCENTRATE [Concomitant]
     Indication: PREOPERATIVE CARE

REACTIONS (3)
  - Procedural haemorrhage [Fatal]
  - Pneumonia [Unknown]
  - Pneumatosis intestinalis [Unknown]
